FAERS Safety Report 6448798-5 (Version None)
Quarter: 2009Q4

REPORT INFORMATION
  Report Type: 
  Country: None (occurrence: None)
  Receive Date: 20091120
  Receipt Date: 20091112
  Transmission Date: 20100525
  Serious: Yes (Disabling)
  Sender: FDA-Public Use
  Company Number: PHHO2009IT09958

PATIENT
  Sex: Female
  Weight: 47 kg

DRUGS (6)
  1. ZOLEDRONATE T29581+SOLINJ+BM [Suspect]
     Indication: METASTASES TO BONE
     Dosage: 4 MG, QMO
     Route: 042
     Dates: start: 20090120, end: 20090805
  2. CALCIUM [Concomitant]
  3. VITAMIN D [Concomitant]
  4. PACLITAXEL [Concomitant]
     Indication: METASTASES TO BONE
     Dosage: UNK
     Dates: start: 20090610
  5. DEXAMETHASONE [Concomitant]
     Dosage: UNK
     Dates: start: 20090610
  6. ANTIBIOTICS [Concomitant]

REACTIONS (11)
  - BONE DISORDER [None]
  - BONE LESION [None]
  - BONE SWELLING [None]
  - BRUXISM [None]
  - DEVICE MISUSE [None]
  - ERYTHEMA [None]
  - MUCOSAL INFLAMMATION [None]
  - OSTEONECROSIS [None]
  - PAIN [None]
  - SOFT TISSUE INFECTION [None]
  - TREATMENT NONCOMPLIANCE [None]
